FAERS Safety Report 7916767-1 (Version None)
Quarter: 2011Q4

REPORT INFORMATION
  Report Type: 
  Country: None (occurrence: None)
  Receive Date: 20111116
  Receipt Date: 20111102
  Transmission Date: 20120403
  Serious: Yes (Other)
  Sender: FDA-Public Use
  Company Number: DE-CELGENEUS-062-50794-11041071

PATIENT
  Age: 33 Year
  Sex: Female
  Weight: 61 kg

DRUGS (12)
  1. MAGNESIUM [Concomitant]
     Route: 065
  2. ACYCLOVIR [Concomitant]
     Route: 065
  3. KALINOR [Concomitant]
     Route: 065
  4. DEXAMETHASONE [Concomitant]
     Route: 065
  5. CALCILAC [Concomitant]
     Route: 065
  6. VIDAZA [Suspect]
     Route: 050
     Dates: start: 20100819
  7. NEULASTA [Concomitant]
     Route: 065
  8. VIDAZA [Suspect]
     Route: 050
     Dates: start: 20100106
  9. NEXIUM [Concomitant]
     Route: 065
  10. VIDISIC [Concomitant]
     Route: 065
  11. ARTELAC [Concomitant]
     Route: 065
  12. COTRIM [Concomitant]
     Route: 065

REACTIONS (5)
  - GRAFT VERSUS HOST DISEASE IN LIVER [None]
  - ACUTE GRAFT VERSUS HOST DISEASE IN SKIN [None]
  - LEUKOPENIA [None]
  - ORAL HERPES [None]
  - GRAFT VERSUS HOST DISEASE IN INTESTINE [None]
